FAERS Safety Report 5779026-1 (Version None)
Quarter: 2008Q2

REPORT INFORMATION
  Report Type: 
  Country: None (occurrence: None)
  Receive Date: 20080617
  Receipt Date: 20071121
  Transmission Date: 20081010
  Serious: Yes (Other)
  Sender: FDA-Public Use
  Company Number: WWISSUE-140

PATIENT
  Sex: Female

DRUGS (5)
  1. ABC BLUE TABLETS USP,325/50/40 MG [Suspect]
     Indication: MIGRAINE
     Dosage: 1 TAB PER 4HRS/ORAL
     Route: 048
  2. DILANTIN [Concomitant]
  3. ZONISAMIDE [Concomitant]
  4. ACROLATE [Concomitant]
  5. ATENOLOL [Concomitant]

REACTIONS (1)
  - DRUG INEFFECTIVE [None]
